FAERS Safety Report 7731709-X (Version None)
Quarter: 2011Q3

REPORT INFORMATION
  Report Type: 
  Country: None (occurrence: None)
  Receive Date: 20110906
  Receipt Date: 20101104
  Transmission Date: 20111222
  Serious: No
  Sender: FDA-Public Use
  Company Number: US-BAYER-201040628NA

PATIENT
  Age: 57 Year
  Sex: Female

DRUGS (1)
  1. ULTRAVIST 150 [Suspect]
     Indication: COMPUTERISED TOMOGRAM THORAX
     Dosage: 300 MG/ML
     Route: 042
     Dates: start: 20101101, end: 20101101

REACTIONS (4)
  - URTICARIA [None]
  - PARAESTHESIA [None]
  - PRURITUS GENERALISED [None]
  - DIZZINESS [None]
